FAERS Safety Report 8782992 (Version 1)
Quarter: 2012Q4

REPORT INFORMATION
  Report Type: Report from Study
  Country: US (occurrence: US)
  Receive Date: 20120913
  Receipt Date: 20120913
  Transmission Date: 20130627
  Serious: No
  Sender: FDA-Public Use
  Company Number: US-VERTEX PHARMACEUTICAL INC.-AE-2012-008764

PATIENT

DRUGS (13)
  1. INCIVEK [Suspect]
     Indication: HEPATITIS C
     Route: 048
  2. PEGASYS [Concomitant]
     Indication: HEPATITIS C
  3. RIBAPAK [Concomitant]
     Indication: HEPATITIS C
  4. PHENERGAN [Concomitant]
  5. LISINOPRIL [Concomitant]
  6. HYDROCO/APAP [Concomitant]
  7. METFORMIN [Concomitant]
  8. VITAMIN B-12 [Concomitant]
  9. JANUVIA [Concomitant]
  10. MAGNESIUM [Concomitant]
  11. BYSTOLIC [Concomitant]
  12. NEXIUM [Concomitant]
  13. PROMETHAZINE [Concomitant]

REACTIONS (5)
  - Influenza like illness [Unknown]
  - White blood cell count decreased [Unknown]
  - Rash [Unknown]
  - Vomiting [Unknown]
  - Nausea [Unknown]
